FAERS Safety Report 18403274 (Version 4)
Quarter: 2022Q1

REPORT INFORMATION
  Report Type: Other
  Country: CA (occurrence: None)
  Receive Date: 20201019
  Receipt Date: 20220323
  Transmission Date: 20220423
  Serious: Yes (Hospitalization, Other)
  Sender: FDA-Public Use
  Company Number: CA-ROCHE-2675401

PATIENT
  Sex: Female

DRUGS (15)
  1. RITUXAN [Suspect]
     Active Substance: RITUXIMAB
     Indication: Rheumatoid arthritis
     Route: 042
     Dates: start: 20150126
  2. BENADRYL [Concomitant]
     Active Substance: DIPHENHYDRAMINE HYDROCHLORIDE
     Indication: Premedication
     Route: 048
     Dates: start: 20150126
  3. BRILINTA [Concomitant]
     Active Substance: TICAGRELOR
  4. METOPROLOL [Concomitant]
     Active Substance: METOPROLOL
  5. ROSUVASTATIN [Concomitant]
     Active Substance: ROSUVASTATIN
  6. SOLU-MEDROL [Concomitant]
     Active Substance: METHYLPREDNISOLONE SODIUM SUCCINATE
     Indication: Premedication
     Route: 042
     Dates: start: 20150126
  7. SYNTHROID [Concomitant]
     Active Substance: LEVOTHYROXINE SODIUM
  8. TYLENOL [Concomitant]
     Active Substance: ACETAMINOPHEN
     Indication: Premedication
     Route: 048
     Dates: start: 20150126
  9. ASPIRIN [Concomitant]
     Active Substance: ASPIRIN
  10. BIAXIN [Concomitant]
     Active Substance: CLARITHROMYCIN
  11. PERINDOPRIL ARGININE [Concomitant]
     Active Substance: PERINDOPRIL ARGININE
  12. PREDNISONE [Concomitant]
     Active Substance: PREDNISONE
  13. SYMBICORT [Concomitant]
     Active Substance: BUDESONIDE\FORMOTEROL FUMARATE DIHYDRATE
  14. TYLENOL ARTHRITIS PAIN [Concomitant]
     Active Substance: ACETAMINOPHEN
  15. TYLENOL WITH CODEINE [Concomitant]
     Active Substance: ACETAMINOPHEN\CODEINE PHOSPHATE

REACTIONS (16)
  - Malaise [Not Recovered/Not Resolved]
  - Nausea [Recovered/Resolved]
  - Abdominal discomfort [Recovered/Resolved]
  - Diarrhoea [Recovered/Resolved]
  - Malaise [Not Recovered/Not Resolved]
  - Pulmonary oedema [Unknown]
  - Palpitations [Unknown]
  - Diarrhoea [Unknown]
  - Abdominal discomfort [Unknown]
  - Pneumonia [Unknown]
  - Asthenia [Unknown]
  - Tremor [Unknown]
  - Pain [Unknown]
  - Limb injury [Unknown]
  - Myocardial infarction [Unknown]
  - Pleural effusion [Unknown]

NARRATIVE: CASE EVENT DATE: 20200101
